FAERS Safety Report 8819002 (Version 1)
Quarter: 2012Q4

REPORT INFORMATION
  Report Type: Spontaneous
  Country: MA (occurrence: None)
  Receive Date: 20121003
  Receipt Date: 20121003
  Transmission Date: 20130627
  Serious: Yes (Other)
  Sender: FDA-Public Use
  Company Number: VAL_00870_2012

PATIENT
  Age: 30 Year
  Sex: Male

DRUGS (1)
  1. BROMOCRIPTINE [Suspect]
     Indication: ATROPHY
     Dosage: (DF)

REACTIONS (2)
  - Abdominal pain upper [None]
  - Drug intolerance [None]
